FAERS Safety Report 7050665-3 (Version None)
Quarter: 2010Q4

REPORT INFORMATION
  Report Type: 
  Country: None (occurrence: None)
  Receive Date: 20101018
  Receipt Date: 20100915
  Transmission Date: 20110411
  Serious: No
  Sender: FDA-Public Use
  Company Number: US-BAYER-201034132NA

PATIENT
  Age: 81 Year
  Sex: Female

DRUGS (7)
  1. ULTRAVIST 370 [Suspect]
     Indication: COMPUTERISED TOMOGRAM THORAX
     Dosage: TOTAL DAILY DOSE: 60 ML  UNIT DOSE: 500 ML
     Route: 042
     Dates: start: 20100915, end: 20100915
  2. DILTIAZEM [Concomitant]
  3. ASPIRIN [Concomitant]
  4. VITAMIN D [Concomitant]
  5. VITAMIN E [Concomitant]
  6. CALCIUM [Concomitant]
  7. ULTRAVIST 370 [Concomitant]
     Indication: PRODUCT USED FOR UNKNOWN INDICATION
     Dates: start: 20090205, end: 20090205

REACTIONS (2)
  - PRURITUS [None]
  - URTICARIA [None]
